FAERS Safety Report 10380669 (Version 1)
Quarter: 2014Q1

REPORT INFORMATION
  Report Type: Spontaneous
  Country: US (occurrence: None)
  Receive Date: 20140306
  Receipt Date: 20140306
  Transmission Date: 20141002
  Serious: Yes (Other)
  Sender: FDA-Public Use
  Company Number: 163-21880-13053082

PATIENT
  Age: 66 Year
  Sex: Female

DRUGS (11)
  1. REVLIMID (LENALIDOMIDE) (10 MILLIGRAM, CAPSULES) [Suspect]
     Indication: PLASMA CELL MYELOMA
     Route: 048
     Dates: start: 20070115
  2. ACYCLOVIR (ACICLOVIR) [Concomitant]
  3. ASPIRIN (ACETYLSALICYLIC ACID) [Concomitant]
  4. AZITHROMYCIN (AZITHROMYCIN) [Concomitant]
  5. CALCIUM MAGNESIUM (CALCIUM W/MAGNESIUM( [Concomitant]
  6. KLOR-CON (POTASSIUM CHLORIDE) [Concomitant]
  7. PRILOSEC (OMEPRAZOLE) [Concomitant]
  8. RECLAST (ZOLEDRONIC ACID) [Concomitant]
  9. XANAX (ALPRAZOLAM) [Concomitant]
  10. LYRICA (PREGABALIN) [Concomitant]
  11. DECADRON (DEXAMETHASONE) [Concomitant]

REACTIONS (2)
  - Neuropathy peripheral [None]
  - Feeling abnormal [None]
